FAERS Safety Report 6244467-5 (Version None)
Quarter: 2009Q2

REPORT INFORMATION
  Report Type: 
  Country: None (occurrence: None)
  Receive Date: 20090625
  Receipt Date: 20090521
  Transmission Date: 20091009
  Serious: Yes (Hospitalization)
  Sender: FDA-Public Use
  Company Number: TR-ELI_LILLY_AND_COMPANY-TR200906003590

PATIENT
  Age: 70 Year
  Sex: Female

DRUGS (4)
  1. HUMULIN R [Suspect]
     Indication: DIABETES MELLITUS
     Dosage: 10 IU, EACH MORNING
     Route: 058
     Dates: start: 20090520
  2. HUMULIN R [Suspect]
     Dosage: 10 IU, OTHER
     Route: 058
     Dates: start: 20070520
  3. HUMULIN R [Suspect]
     Dosage: 10 IU, EACH EVENING
     Route: 058
     Dates: start: 20070520
  4. LANTUS [Concomitant]
     Indication: HYPERGLYCAEMIA
     Dosage: 30 IU, EACH EVENING
     Route: 058
     Dates: start: 20070520

REACTIONS (2)
  - HEADACHE [None]
  - HYPERGLYCAEMIA [None]
